FAERS Safety Report 23876324 (Version 1)
Quarter: 2024Q2

REPORT INFORMATION
  Report Type: Report from Study
  Country: US (occurrence: US)
  Receive Date: 20240520
  Receipt Date: 20240520
  Transmission Date: 20240716
  Serious: Yes (Death, Other)
  Sender: FDA-Public Use
  Company Number: US-ABBVIE-5765972

PATIENT
  Age: 69 Year
  Sex: Male
  Weight: 56.7 kg

DRUGS (3)
  1. CREON [Suspect]
     Active Substance: PANCRELIPASE AMYLASE\PANCRELIPASE LIPASE\PANCRELIPASE PROTEASE
     Indication: Pancreatic failure
     Dosage: FORM STRENGTH: 36000 UNIT?FREQUENCY TEXT: 1 CAPSULE EVERY MEAL?START DATE TEXT: JUNE OR JULY OF 2023
     Route: 048
     Dates: start: 202306, end: 202404
  2. IRINOTECAN [Concomitant]
     Active Substance: IRINOTECAN
     Indication: Pancreatic carcinoma
  3. FLUOROURACIL [Concomitant]
     Active Substance: FLUOROURACIL
     Indication: Pancreatic carcinoma

REACTIONS (4)
  - Pancreatic carcinoma [Fatal]
  - Product use complaint [Not Recovered/Not Resolved]
  - Bile duct stent insertion [Unknown]
  - Intestinal stent insertion [Unknown]

NARRATIVE: CASE EVENT DATE: 20230912
